FAERS Safety Report 13329213 (Version 1)
Quarter: 2017Q1

REPORT INFORMATION
  Report Type: Spontaneous
  Country: US (occurrence: US)
  Receive Date: 20170313
  Receipt Date: 20170313
  Transmission Date: 20170428
  Serious: Yes (Death)
  Sender: FDA-Public Use
  Company Number: None

PATIENT
  Age: 76 Year
  Sex: Male

DRUGS (11)
  1. HYDROCHLOROTHIAZIDE. [Concomitant]
     Active Substance: HYDROCHLOROTHIAZIDE
  2. ZYPREXA [Suspect]
     Active Substance: OLANZAPINE
     Dosage: TO THE ER HOSPITAL 6-5-14 TO 6-6-14
     Dates: start: 20140605, end: 20140606
  3. ASPIR-LOW EC [Concomitant]
  4. OMEPRAZOLE DR [Concomitant]
     Active Substance: OMEPRAZOLE
  5. FINASTERIDE. [Concomitant]
     Active Substance: FINASTERIDE
  6. HALDOL [Suspect]
     Active Substance: HALOPERIDOL
  7. BENADRYL [Suspect]
     Active Substance: DIPHENHYDRAMINE HYDROCHLORIDE
  8. MELATONIN [Concomitant]
     Active Substance: MELATONIN
  9. NAMENDA [Concomitant]
     Active Substance: MEMANTINE HYDROCHLORIDE
  10. TAMSULOSIN HCL [Concomitant]
     Active Substance: TAMSULOSIN
  11. LACTULOSE. [Concomitant]
     Active Substance: LACTULOSE

REACTIONS (5)
  - Feeling cold [None]
  - Confusional state [None]
  - Dysstasia [None]
  - Speech disorder [None]
  - Abasia [None]

NARRATIVE: CASE EVENT DATE: 20140606
